FAERS Safety Report 19634680 (Version 2)
Quarter: 2021Q3

REPORT INFORMATION
  Report Type: Report from Study
  Country: None (occurrence: US)
  Receive Date: 20210730
  Receipt Date: 20210812
  Transmission Date: 20211014
  Serious: Yes (Hospitalization, Other)
  Sender: FDA-Public Use
  Company Number: US-ABBVIE-21K-163-4011748-00

PATIENT
  Age: 78 Year
  Sex: Female
  Weight: 69.01 kg

DRUGS (4)
  1. PFIZER?BIONTECH COVID?19 VACCINE [Concomitant]
     Active Substance: TOZINAMERAN
     Indication: COVID-19 IMMUNISATION
     Route: 030
     Dates: start: 2021, end: 2021
  2. RINVOQ [Suspect]
     Active Substance: UPADACITINIB
     Route: 048
     Dates: start: 202106
  3. PFIZER?BIONTECH COVID?19 VACCINE [Concomitant]
     Active Substance: TOZINAMERAN
     Route: 030
     Dates: start: 2021, end: 2021
  4. RINVOQ [Suspect]
     Active Substance: UPADACITINIB
     Indication: RHEUMATOID ARTHRITIS
     Route: 048
     Dates: start: 2020, end: 2020

REACTIONS (11)
  - Atrial fibrillation [Recovering/Resolving]
  - Nail ridging [Recovered/Resolved]
  - COVID-19 pneumonia [Recovered/Resolved]
  - Onychoclasis [Recovered/Resolved]
  - Dry skin [Recovering/Resolving]
  - Skin exfoliation [Recovering/Resolving]
  - Abdominal pain [Recovered/Resolved]
  - Gastric haemorrhage [Recovered/Resolved]
  - Deafness [Not Recovered/Not Resolved]
  - Alopecia [Recovering/Resolving]
  - Amnesia [Recovering/Resolving]

NARRATIVE: CASE EVENT DATE: 2020
